FAERS Safety Report 19001212 (Version 5)
Quarter: 2021Q2

REPORT INFORMATION
  Report Type: Spontaneous
  Country: FR (occurrence: FR)
  Receive Date: 20210312
  Receipt Date: 20210426
  Transmission Date: 20210717
  Serious: Yes (Hospitalization, Other)
  Sender: FDA-Public Use
  Company Number: FR-PFIZER INC-2021233655

PATIENT
  Age: 48 Year
  Sex: Female

DRUGS (1)
  1. ENBREL [Suspect]
     Active Substance: ETANERCEPT
     Indication: POLYARTHRITIS
     Dosage: 50 MG, WEEKLY
     Dates: start: 2013

REACTIONS (9)
  - Off label use [Unknown]
  - Device defective [Not Recovered/Not Resolved]
  - Fear of injection [Unknown]
  - Abdominal pain [Not Recovered/Not Resolved]
  - Incorrect dose administered by device [Not Recovered/Not Resolved]
  - Injury associated with device [Not Recovered/Not Resolved]
  - Pruritus [Unknown]
  - Injection site erythema [Not Recovered/Not Resolved]
  - Dermatitis acneiform [Unknown]

NARRATIVE: CASE EVENT DATE: 2013
